FAERS Safety Report 25203911 (Version 1)
Quarter: 2025Q2

REPORT INFORMATION
  Report Type: Spontaneous
  Country: US (occurrence: US)
  Receive Date: 20250416
  Receipt Date: 20250416
  Transmission Date: 20250716
  Serious: No
  Sender: JOHNSON AND JOHNSON
  Company Number: US-JNJFOC-20250405871

PATIENT
  Sex: Female

DRUGS (4)
  1. BALVERSA [Suspect]
     Active Substance: ERDAFITINIB
     Indication: Product used for unknown indication
  2. BALVERSA [Suspect]
     Active Substance: ERDAFITINIB
  3. BALVERSA [Suspect]
     Active Substance: ERDAFITINIB
  4. BALVERSA [Suspect]
     Active Substance: ERDAFITINIB

REACTIONS (2)
  - Product use complaint [Unknown]
  - Dysphagia [Unknown]
